FAERS Safety Report 5103418-7 (Version None)
Quarter: 2006Q3

REPORT INFORMATION
  Report Type: 
  Country: None (occurrence: None)
  Receive Date: 20060913
  Receipt Date: 20060908
  Transmission Date: 20061208
  Serious: Yes (Other)
  Sender: FDA-Public Use
  Company Number: FR-BRISTOL-MYERS SQUIBB COMPANY-13503651

PATIENT
  Age: 65 Year
  Sex: Male

DRUGS (4)
  1. SUSTIVA [Suspect]
     Indication: HIV INFECTION
     Route: 048
     Dates: start: 20060901
  2. TRUVADA [Concomitant]
     Indication: HIV INFECTION
     Dates: start: 20060901
  3. PYRIMETHAMINE TAB [Concomitant]
     Indication: CEREBRAL TOXOPLASMOSIS
     Dates: start: 20060801
  4. SULFADIAZINE [Concomitant]
     Indication: CEREBRAL TOXOPLASMOSIS
     Dates: start: 20060801

REACTIONS (1)
  - EPILEPSY [None]
